FAERS Safety Report 21354681 (Version 1)
Quarter: 2022Q3

REPORT INFORMATION
  Report Type: Spontaneous
  Country: US (occurrence: US)
  Receive Date: 20220920
  Receipt Date: 20220920
  Transmission Date: 20221027
  Serious: No
  Sender: FDA-Public Use
  Company Number: US-PFIZER INC-202201167372

PATIENT
  Sex: Female

DRUGS (1)
  1. GABAPENTIN [Suspect]
     Active Substance: GABAPENTIN
     Indication: Sciatica
     Dosage: UNK

REACTIONS (3)
  - Urinary tract infection [Unknown]
  - COVID-19 [Unknown]
  - Blood urine present [Unknown]

NARRATIVE: CASE EVENT DATE: 20220501
